FAERS Safety Report 7164000-3 (Version None)
Quarter: 2010Q4

REPORT INFORMATION
  Report Type: 
  Country: None (occurrence: None)
  Receive Date: 20101215
  Receipt Date: 20101207
  Transmission Date: 20110411
  Serious: Yes (Other)
  Sender: FDA-Public Use
  Company Number: A0879880A

PATIENT
  Age: 85 Year
  Sex: Male

DRUGS (13)
  1. PROMACTA [Suspect]
     Indication: IDIOPATHIC THROMBOCYTOPENIC PURPURA
     Dosage: 50MG PER DAY
     Route: 048
     Dates: start: 20100623, end: 20101001
  2. GABAPENTIN [Concomitant]
  3. PAXIL [Concomitant]
  4. NEXIUM [Concomitant]
  5. PROCARDIA [Concomitant]
  6. TOPROL-XL [Concomitant]
  7. FLOMAX [Concomitant]
  8. ZETIA [Concomitant]
  9. TORASEMIDE [Concomitant]
  10. VITAMIN B-12 [Concomitant]
  11. FOLIC ACID [Concomitant]
  12. VITAMIN B6 [Concomitant]
  13. BIOTIN [Concomitant]

REACTIONS (6)
  - CATARACT [None]
  - DRUG INEFFECTIVE [None]
  - HAEMOGLOBIN DECREASED [None]
  - INCREASED TENDENCY TO BRUISE [None]
  - PLATELET COUNT DECREASED [None]
  - RED BLOOD CELL COUNT DECREASED [None]
